FAERS Safety Report 5273270-8 (Version None)
Quarter: 2007Q1

REPORT INFORMATION
  Report Type: 
  Country: None (occurrence: None)
  Receive Date: 20070319
  Receipt Date: 20070302
  Transmission Date: 20070707
  Serious: Yes (Hospitalization)
  Sender: FDA-Public Use
  Company Number: 2007P1000070

PATIENT
  Age: 64 Year
  Sex: Female

DRUGS (4)
  1. NICARDIPINE HYDROCHLORIDE [Suspect]
     Indication: HYPERTENSION
     Dosage: 20 MG;; PO
     Route: 048
     Dates: start: 20060814
  2. ATORVASTATIN CALCIUM [Suspect]
     Dosage: 10 MG;  PO
     Route: 048
     Dates: start: 20060814, end: 20070106
  3. REBAMIPIDE [Concomitant]
  4. TOUGHMAC E [Concomitant]

REACTIONS (7)
  - ALANINE AMINOTRANSFERASE INCREASED [None]
  - ASPARTATE AMINOTRANSFERASE INCREASED [None]
  - BLOOD LACTATE DEHYDROGENASE INCREASED [None]
  - ERYTHEMA MULTIFORME [None]
  - HEPATIC FUNCTION ABNORMAL [None]
  - OEDEMA PERIPHERAL [None]
  - PURPURA [None]
